FAERS Safety Report 7311820-8 (Version None)
Quarter: 2011Q1

REPORT INFORMATION
  Report Type: 
  Country: None (occurrence: None)
  Receive Date: 20110224
  Receipt Date: 20110210
  Transmission Date: 20110831
  Serious: Yes (Death)
  Sender: FDA-Public Use
  Company Number: SE-BIOGENIDEC-2011BI003184

PATIENT
  Age: 61 Year
  Sex: Female

DRUGS (1)
  1. TYSABRI [Suspect]
     Indication: MULTIPLE SCLEROSIS
     Dates: start: 20071129, end: 20080508

REACTIONS (2)
  - MULTIPLE SCLEROSIS [None]
  - DRUG SPECIFIC ANTIBODY PRESENT [None]
